FAERS Safety Report 4830047-2 (Version None)
Quarter: 2005Q4

REPORT INFORMATION
  Report Type: 
  Country: None (occurrence: None)
  Receive Date: 20051115
  Receipt Date: 20051115
  Transmission Date: 20060501
  Serious: Yes (Death, Life-Threatening, Hospitalization, Other)
  Sender: FDA-Public Use
  Company Number: None

PATIENT
  Sex: Male
  Weight: 98.8 kg

DRUGS (2)
  1. ZYVOX [Suspect]
     Indication: CATHETER SITE INFECTION
     Dosage: 600 MG BID  PO
     Route: 048
     Dates: start: 20050904, end: 20051001
  2. ZYVOX [Suspect]
     Indication: STAPHYLOCOCCAL INFECTION
     Dosage: 600 MG BID  PO
     Route: 048
     Dates: start: 20050904, end: 20051001

REACTIONS (6)
  - ARTHRALGIA [None]
  - BONE MARROW FAILURE [None]
  - COLITIS [None]
  - EYE PAIN [None]
  - NECK PAIN [None]
  - SEPTIC SHOCK [None]
